FAERS Safety Report 6631797-8 (Version None)
Quarter: 2010Q1

REPORT INFORMATION
  Report Type: 
  Country: None (occurrence: None)
  Receive Date: 20100310
  Receipt Date: 20100302
  Transmission Date: 20100710
  Serious: Yes (Other)
  Sender: FDA-Public Use
  Company Number: OPER20100043

PATIENT
  Age: 48 Year
  Sex: Female

DRUGS (1)
  1. OPANA ER [Suspect]
     Indication: PAIN
     Dosage: BID, ORAL
     Route: 048
     Dates: start: 20090101

REACTIONS (1)
  - RENAL FAILURE ACUTE [None]
